FAERS Safety Report 11820509 (Version 1)
Quarter: 2015Q4

REPORT INFORMATION
  Report Type: Spontaneous
  Country: US (occurrence: US)
  Receive Date: 20151210
  Receipt Date: 20151210
  Transmission Date: 20160305
  Serious: No
  Sender: FDA-Public Use
  Company Number: US-JNJFOC-20150704103

PATIENT
  Sex: Male

DRUGS (2)
  1. IMBRUVICA [Suspect]
     Active Substance: IBRUTINIB
     Indication: CHRONIC LYMPHOCYTIC LEUKAEMIA
     Route: 048
     Dates: start: 20140514
  2. GERITOL [Concomitant]
     Active Substance: MINERALS\VITAMINS

REACTIONS (3)
  - Heart rate decreased [Unknown]
  - Muscle spasms [Unknown]
  - Peripheral swelling [Recovering/Resolving]
